FAERS Safety Report 13909474 (Version 1)
Quarter: 2017Q3

REPORT INFORMATION
  Report Type: Spontaneous
  Country: BR (occurrence: BR)
  Receive Date: 20170828
  Receipt Date: 20170828
  Transmission Date: 20171127
  Serious: Yes (Other)
  Sender: FDA-Public Use
  Company Number: BR-ROCHE-1980181

PATIENT
  Sex: Female

DRUGS (1)
  1. XELODA [Suspect]
     Active Substance: CAPECITABINE
     Indication: INVASIVE BREAST CARCINOMA
     Route: 065
     Dates: start: 20170707, end: 20170718

REACTIONS (6)
  - Thrombocytopenia [Unknown]
  - Paresis [Unknown]
  - Stomatitis [Unknown]
  - Eyelid ptosis [Unknown]
  - Hemiplegia [Unknown]
  - Nausea [Unknown]
